FAERS Safety Report 17128696 (Version 2)
Quarter: 2019Q4

REPORT INFORMATION
  Report Type: Spontaneous
  Country: US (occurrence: US)
  Receive Date: 20191209
  Receipt Date: 20191210
  Transmission Date: 20200122
  Serious: Yes (Life-Threatening, Hospitalization, Other)
  Sender: FDA-Public Use
  Company Number: US-B.I. PHARMACEUTICALS,INC./RIDGEFIELD-2019-US-117485

PATIENT
  Age: 40 Year
  Sex: Female

DRUGS (1)
  1. VIRAMUNE [Suspect]
     Active Substance: NEVIRAPINE
     Indication: HIV INFECTION
     Dosage: ONCE DAILY
     Route: 065
     Dates: start: 200003, end: 200003

REACTIONS (13)
  - Hernia [Recovered/Resolved]
  - Liver transplant rejection [Recovered/Resolved with Sequelae]
  - Renal transplant [Recovered/Resolved]
  - Drug hypersensitivity [Unknown]
  - Jaundice [Recovered/Resolved]
  - Osteoarthritis [Not Recovered/Not Resolved]
  - Osteoporosis [Not Recovered/Not Resolved]
  - Biliary tract disorder [Recovered/Resolved]
  - Hepatic failure [Recovered/Resolved with Sequelae]
  - Liver transplant rejection [Recovered/Resolved]
  - Ascites [Recovered/Resolved]
  - Hepatotoxicity [Unknown]
  - Thrombosis [Not Recovered/Not Resolved]

NARRATIVE: CASE EVENT DATE: 200003
